FAERS Safety Report 19715338 (Version 1)
Quarter: 2021Q3

REPORT INFORMATION
  Report Type: Spontaneous
  Country: IN (occurrence: IN)
  Receive Date: 20210818
  Receipt Date: 20210818
  Transmission Date: 20211014
  Serious: Yes (Death, Other)
  Sender: FDA-Public Use
  Company Number: IN-PFIZER INC-2017462111

PATIENT
  Age: 67 Year
  Sex: Female

DRUGS (3)
  1. LETROZOLE. [Concomitant]
     Active Substance: LETROZOLE
     Dosage: UNK
  2. PALBACE [Suspect]
     Active Substance: PALBOCICLIB
     Dosage: 100 MG, CYCLIC 1X/DAY
  3. PALBACE [Suspect]
     Active Substance: PALBOCICLIB
     Indication: BREAST CANCER METASTATIC
     Dosage: 125 MG, CYCLIC (1X/DAY)
     Dates: start: 20171005

REACTIONS (6)
  - Pleural effusion [Not Recovered/Not Resolved]
  - Asthenia [Recovered/Resolved]
  - Death [Fatal]
  - White blood cell count decreased [Recovered/Resolved]
  - General physical health deterioration [Unknown]
  - Neutropenia [Unknown]

NARRATIVE: CASE EVENT DATE: 20201210
